FAERS Safety Report 9071744 (Version 1)
Quarter: 2013Q1

REPORT INFORMATION
  Report Type: Spontaneous
  Country: DE (occurrence: DE)
  Receive Date: 20130129
  Receipt Date: 20130129
  Transmission Date: 20140127
  Serious: Yes (Other)
  Sender: FDA-Public Use
  Company Number: DE-BRISTOL-MYERS SQUIBB COMPANY-17314055

PATIENT
  Sex: Female

DRUGS (1)
  1. LITALIR [Suspect]

REACTIONS (1)
  - Cartilage injury [Unknown]
